FAERS Safety Report 6064604-5 (Version None)
Quarter: 2009Q1

REPORT INFORMATION
  Report Type: 
  Country: None (occurrence: None)
  Receive Date: 20090204
  Receipt Date: 20090130
  Transmission Date: 20090719
  Serious: Yes (Hospitalization)
  Sender: FDA-Public Use
  Company Number: B0557119A

PATIENT
  Age: 50 Year
  Sex: Male

DRUGS (1)
  1. AUGMENTIN '125' [Suspect]
     Dosage: 1.2G THREE TIMES PER DAY
     Route: 042
     Dates: start: 20080213, end: 20080215

REACTIONS (2)
  - PURPURA [None]
  - TOXIC SKIN ERUPTION [None]
